FAERS Safety Report 19638722 (Version 2)
Quarter: 2021Q3

REPORT INFORMATION
  Report Type: Spontaneous
  Country: CN (occurrence: CN)
  Receive Date: 20210730
  Receipt Date: 20210823
  Transmission Date: 20211014
  Serious: Yes (Other)
  Sender: FDA-Public Use
  Company Number: CN-SLATE RUN PHARMACEUTICALS-21CN000597

PATIENT

DRUGS (2)
  1. GANCICLOVIR USP [Suspect]
     Active Substance: GANCICLOVIR
     Indication: OPHTHALMIC HERPES ZOSTER
     Dosage: ONE INJECTION (3MG/0.1ML) EVERY 2 WEEKS (A TOTAL OF NINE ROUNDS)
  2. ANTIVIRALS FOR SYSTEMIC USE [Concomitant]
     Indication: OPHTHALMIC HERPES ZOSTER
     Dosage: UNK

REACTIONS (6)
  - Maculopathy [Unknown]
  - Retinal injury [Unknown]
  - Retinopathy [Unknown]
  - Visual acuity reduced [Recovered/Resolved]
  - Off label use [Recovered/Resolved]
  - Retinal toxicity [Unknown]
